FAERS Safety Report 6713495-5 (Version None)
Quarter: 2010Q2

REPORT INFORMATION
  Report Type: 
  Country: None (occurrence: None)
  Receive Date: 20100503
  Receipt Date: 20100426
  Transmission Date: 20101027
  Serious: Yes (Life-Threatening, Hospitalization, Other)
  Sender: FDA-Public Use
  Company Number: 2010AL000610

PATIENT
  Age: 50 Year
  Sex: Male

DRUGS (1)
  1. DICLOFENAC SODIUM [Suspect]
     Dosage: 50 MG;BID;PO
     Route: 048
     Dates: start: 20091007, end: 20091025

REACTIONS (4)
  - ANKLE FRACTURE [None]
  - FALL [None]
  - HEAD INJURY [None]
  - SWELLING FACE [None]
